FAERS Safety Report 8179847-4 (Version None)
Quarter: 2012Q1

REPORT INFORMATION
  Report Type: 
  Country: None (occurrence: None)
  Receive Date: 20120229
  Receipt Date: 20120216
  Transmission Date: 20120608
  Serious: Yes (Life-Threatening, Hospitalization, Other)
  Sender: FDA-Public Use
  Company Number: UTC-015724

PATIENT
  Age: 66 Year
  Sex: Female
  Weight: 91 kg

DRUGS (14)
  1. ESTROGEN (ESTROGEN NOS) (VAGINAL CREAM) [Concomitant]
  2. GLUCOSAMINE (GLUCOSAMINE) [Concomitant]
  3. ASPIRIN [Concomitant]
  4. LIPITOR [Concomitant]
  5. FEXOFENADINE HCL [Concomitant]
  6. PAROXETINE HCL [Concomitant]
  7. PANTOPRAZOLE [Concomitant]
  8. OXYGEN (OXYGEN) (INHALANT) [Concomitant]
  9. CALCIUM WITH VITAMIN D (CALCIUM D3 /01483701/) (TABLET) [Concomitant]
  10. MULTIVITAMIN (MULTIVITAMIN /00831701/) (TABLET) [Concomitant]
  11. LASIX (FUROSEMIDE) (INJECTION FOR INFUSION) [Concomitant]
  12. TYVASO [Suspect]
     Indication: PULMONARY ARTERIAL HYPERTENSION
     Dosage: 216 MCG (54 MCG, 4 IN 1 D), INHALATION
     Route: 055
     Dates: start: 20110902
  13. HYDROCHLOROTHIAZIDE [Concomitant]
  14. REVATIO (SILDENAFIL CITRATE) (20 MILLIGRAM, TABLET) [Concomitant]

REACTIONS (3)
  - NEUTROPENIA [None]
  - PANCYTOPENIA [None]
  - CONTUSION [None]
